FAERS Safety Report 15660818 (Version 3)
Quarter: 2020Q3

REPORT INFORMATION
  Report Type: Spontaneous
  Country: CA (occurrence: CA)
  Receive Date: 20181127
  Receipt Date: 20181214
  Transmission Date: 20201105
  Serious: Yes (Death)
  Sender: FDA-Public Use
  Company Number: CA-CELGENEUS-CAN-20181106400

PATIENT
  Age: 61 Year
  Sex: Male

DRUGS (6)
  1. DURVALUMAB. [Suspect]
     Active Substance: DURVALUMAB
     Indication: PANCREATIC CARCINOMA
     Dosage: 1500 MILLIGRAM
     Route: 042
     Dates: start: 20161221
  2. TREMELIMUMAB. [Suspect]
     Active Substance: TREMELIMUMAB
     Indication: PANCREATIC CARCINOMA
     Dosage: 75 MILLIGRAM
     Route: 042
     Dates: start: 20161221
  3. GEMCITABINE. [Suspect]
     Active Substance: GEMCITABINE
     Indication: PANCREATIC CARCINOMA
     Dosage: 1080 MILLIGRAM
     Route: 042
     Dates: start: 20161221
  4. ABRAXANE [Suspect]
     Active Substance: PACLITAXEL
     Indication: PANCREATIC CARCINOMA
     Dosage: 124 MILLIGRAM
     Route: 042
     Dates: start: 20161221
  5. DURVALUMAB. [Suspect]
     Active Substance: DURVALUMAB
     Dosage: 1500 MILLIGRAM
     Route: 042
  6. GEMCITABINE. [Suspect]
     Active Substance: GEMCITABINE
     Dosage: 1080 MILLIGRAM
     Route: 042
     Dates: start: 20181030

REACTIONS (2)
  - Pancreatic carcinoma metastatic [Fatal]
  - Arrhythmia [Fatal]

NARRATIVE: CASE EVENT DATE: 20181109
